FAERS Safety Report 5922441-3 (Version None)
Quarter: 2008Q4

REPORT INFORMATION
  Report Type: 
  Country: None (occurrence: None)
  Receive Date: 20081017
  Receipt Date: 20081010
  Transmission Date: 20090506
  Serious: Yes (Hospitalization)
  Sender: FDA-Public Use
  Company Number: ES-GENENTECH-269645

PATIENT
  Age: 30 Year
  Sex: Female

DRUGS (1)
  1. RAPTIVA [Suspect]
     Indication: DERMATITIS ATOPIC
     Dosage: UNK
     Route: 058
     Dates: start: 20080301, end: 20081001

REACTIONS (1)
  - DERMATITIS EXFOLIATIVE [None]
